FAERS Safety Report 10143363 (Version 2)
Quarter: 2014Q2

REPORT INFORMATION
  Report Type: Spontaneous
  Country: SE (occurrence: SE)
  Receive Date: 20140430
  Receipt Date: 20140430
  Transmission Date: 20141212
  Serious: Yes (Other)
  Sender: FDA-Public Use
  Company Number: PHHY2013SE077123

PATIENT
  Age: 88 Year
  Sex: Female

DRUGS (3)
  1. ACLASTA [Suspect]
     Indication: SPINAL CORD COMPRESSION
     Dosage: UNK
     Route: 042
     Dates: start: 20130626
  2. ALVEDON [Concomitant]
     Indication: MYALGIA
     Dosage: UNK
     Dates: start: 20130627, end: 20130630
  3. SOBRIL [Concomitant]
     Dosage: UNK

REACTIONS (12)
  - Visual impairment [Not Recovered/Not Resolved]
  - Visual acuity reduced [Not Recovered/Not Resolved]
  - Spinal pain [Not Recovered/Not Resolved]
  - Blood pressure increased [Not Recovered/Not Resolved]
  - Myalgia [Not Recovered/Not Resolved]
  - Pain in extremity [Not Recovered/Not Resolved]
  - Back pain [Not Recovered/Not Resolved]
  - Malaise [Not Recovered/Not Resolved]
  - Feeling cold [Not Recovered/Not Resolved]
  - Headache [Unknown]
  - Paraesthesia [Not Recovered/Not Resolved]
  - Dizziness [Not Recovered/Not Resolved]
